FAERS Safety Report 8879045 (Version 1)
Quarter: 2012Q4

REPORT INFORMATION
  Report Type: Spontaneous
  Country: US (occurrence: None)
  Receive Date: 20121031
  Receipt Date: 20121031
  Transmission Date: 20130627
  Serious: Yes (Other)
  Sender: FDA-Public Use
  Company Number: None

PATIENT
  Sex: Male

DRUGS (1)
  1. TARCEVA [Suspect]
     Indication: LUNG CANCER
     Dosage: 150mg daily oral
     Route: 048
     Dates: start: 20110808, end: 201210

REACTIONS (1)
  - Drug ineffective [None]
